FAERS Safety Report 18181525 (Version 1)
Quarter: 2020Q3

REPORT INFORMATION
  Report Type: Spontaneous
  Country: RO (occurrence: RO)
  Receive Date: 20200821
  Receipt Date: 20200821
  Transmission Date: 20201103
  Serious: Yes (Death, Hospitalization, Other)
  Sender: FDA-Public Use
  Company Number: RO-AMNEAL PHARMACEUTICALS-2020-AMRX-02542

PATIENT
  Age: 68 Year
  Sex: Female

DRUGS (4)
  1. CYCLOPHOSPHAMIDE. [Suspect]
     Active Substance: CYCLOPHOSPHAMIDE
     Indication: CHEMOTHERAPY
  2. EPIRUBICIN HYDROCHLORIDE. [Suspect]
     Active Substance: EPIRUBICIN HYDROCHLORIDE
     Indication: CHEMOTHERAPY
  3. CYCLOPHOSPHAMIDE. [Suspect]
     Active Substance: CYCLOPHOSPHAMIDE
     Indication: BREAST CANCER STAGE III
     Dosage: 600 MILLIGRAM/SQ. METER
     Route: 065
  4. EPIRUBICIN HYDROCHLORIDE. [Suspect]
     Active Substance: EPIRUBICIN HYDROCHLORIDE
     Indication: BREAST CANCER STAGE III
     Dosage: 100 M/M2
     Route: 065

REACTIONS (8)
  - Pancreatitis acute [Unknown]
  - Metabolic acidosis [Unknown]
  - Neutropenia [Unknown]
  - Septic shock [Unknown]
  - Leukopenia [Unknown]
  - Cardiac arrest [Fatal]
  - Clostridium difficile infection [Unknown]
  - Acute kidney injury [Unknown]
